FAERS Safety Report 4946778-X (Version None)
Quarter: 2006Q1

REPORT INFORMATION
  Report Type: 
  Country: None (occurrence: None)
  Receive Date: 20060317
  Receipt Date: 20060306
  Transmission Date: 20060701
  Serious: Yes (Hospitalization)
  Sender: FDA-Public Use
  Company Number: PHBS2006US03739

PATIENT
  Age: 37 Year
  Sex: Female

DRUGS (1)
  1. FORMOTEROL [Suspect]
     Indication: ASTHMA
     Dosage: 12 UG, BID

REACTIONS (1)
  - PNEUMONIA [None]
